FAERS Safety Report 4463919-1 (Version None)
Quarter: 2004Q3

REPORT INFORMATION
  Report Type: 
  Country: None (occurrence: None)
  Receive Date: 20040929
  Receipt Date: 20040623
  Transmission Date: 20050211
  Serious: Yes (Hospitalization)
  Sender: FDA-Public Use
  Company Number: 6009341F

PATIENT
  Age: 56 Year
  Sex: Female

DRUGS (3)
  1. NIASPAN [Suspect]
     Indication: DYSLIPIDAEMIA
     Dosage: 500 MG QD PO
     Route: 048
     Dates: start: 20040608, end: 20040617
  2. SIMVASTATIN [Concomitant]
  3. ATENOLOL [Concomitant]

REACTIONS (4)
  - CIRCULATORY COLLAPSE [None]
  - DIZZINESS [None]
  - HYPERSENSITIVITY [None]
  - TREMOR [None]
